FAERS Safety Report 24036126 (Version 1)
Quarter: 2024Q3

REPORT INFORMATION
  Report Type: Spontaneous
  Country: DK (occurrence: None)
  Receive Date: 20240701
  Receipt Date: 20240701
  Transmission Date: 20241016
  Serious: Yes (Death, Life-Threatening, Hospitalization, Other)
  Sender: ASTRAZENECA
  Company Number: 2024A147258

PATIENT
  Age: 92 Year
  Sex: Female
  Weight: 58 kg

DRUGS (8)
  1. DAPAGLIFLOZIN [Suspect]
     Active Substance: DAPAGLIFLOZIN
     Indication: Type 2 diabetes mellitus
     Route: 048
     Dates: start: 20200203, end: 20230817
  2. AMLODIPINE BESYLATE [Concomitant]
     Active Substance: AMLODIPINE BESYLATE
     Indication: Hypertension
     Dates: start: 2017
  3. BETOLVEX [Concomitant]
     Indication: Vitamin B12 deficiency
     Dates: start: 2017
  4. METFORMIN [Concomitant]
     Active Substance: METFORMIN HYDROCHLORIDE
     Indication: Type 2 diabetes mellitus
     Dosage: 0.5 - DAILY
     Dates: start: 20170220
  5. THIAMINE [Concomitant]
     Active Substance: THIAMINE
     Indication: Vitamin supplementation
     Dates: start: 2017
  6. FOLIC ACID [Concomitant]
     Active Substance: FOLIC ACID
     Indication: Vitamin supplementation
     Dosage: STRENGTH: 0.4 MG
     Dates: start: 2017
  7. VILDAGLIPTIN/METFORMIN KRKA [Concomitant]
     Indication: Type 2 diabetes mellitus
     Dosage: 0.5 - DAILY1.0DF UNKNOWN
     Dates: start: 20230426
  8. ENALAPRIL [Concomitant]
     Active Substance: ENALAPRIL
     Indication: Hypertension
     Dosage: STRENGTH: 2.5 MG
     Dates: start: 2017

REACTIONS (5)
  - Sepsis [Fatal]
  - Acute kidney injury [Fatal]
  - Diabetic ketoacidosis [Fatal]
  - Urosepsis [Unknown]
  - Confusional state [Unknown]

NARRATIVE: CASE EVENT DATE: 20230817
